FAERS Safety Report 4889708-1 (Version None)
Quarter: 2006Q1

REPORT INFORMATION
  Report Type: 
  Country: None (occurrence: None)
  Receive Date: 20060120
  Receipt Date: 20060106
  Transmission Date: 20060701
  Serious: Yes (Congenital Anomaly)
  Sender: FDA-Public Use
  Company Number: SUSI-2006-00054

PATIENT
  Sex: Male

DRUGS (3)
  1. PENTASA [Suspect]
     Indication: COLITIS ULCERATIVE
     Dosage: 4G  DAILY; TRANSPLACENTAL
     Route: 064
  2. ASACOL [Suspect]
     Indication: COLITIS ULCERATIVE
     Dosage: 1 G DAILY; TRANSPLACENTAL
     Route: 064
  3. TRIOFAN (XYLOMETAZOLINE HYDROCHLORIDE) [Suspect]
     Indication: RHINITIS
     Dosage: UNK, TRANSPLACENTAL
     Route: 064
     Dates: start: 20050816, end: 20051031

REACTIONS (5)
  - DRUG EXPOSURE DURING PREGNANCY [None]
  - FOETAL DISORDER [None]
  - PERICARDIAL EFFUSION [None]
  - TACHYCARDIA FOETAL [None]
  - URINARY TRACT MALFORMATION [None]
